FAERS Safety Report 15396871 (Version 1)
Quarter: 2018Q3

REPORT INFORMATION
  Report Type: Spontaneous
  Country: US (occurrence: US)
  Receive Date: 20180918
  Receipt Date: 20180918
  Transmission Date: 20181010
  Serious: No
  Sender: FDA-Public Use
  Company Number: US-SA-2018SA258554

PATIENT
  Sex: Female

DRUGS (1)
  1. LANTUS [Suspect]
     Active Substance: INSULIN GLARGINE

REACTIONS (4)
  - Dizziness [Unknown]
  - Drug dose omission [Unknown]
  - Hyperhidrosis [Unknown]
  - Blood glucose decreased [Unknown]
